FAERS Safety Report 5145865-3 (Version None)
Quarter: 2006Q4

REPORT INFORMATION
  Report Type: 
  Country: None (occurrence: None)
  Receive Date: 20061101
  Receipt Date: 20061024
  Transmission Date: 20070319
  Serious: Yes (Hospitalization)
  Sender: FDA-Public Use
  Company Number: 14804

PATIENT
  Age: 37 Year
  Sex: Female

DRUGS (10)
  1. CYTARABINE [Suspect]
     Indication: ACUTE MYELOID LEUKAEMIA
     Dates: start: 20060804, end: 20060809
  2. CEP-701 [Suspect]
     Indication: ACUTE MYELOID LEUKAEMIA
     Dosage: 80 MG DAILY PO
     Route: 048
     Dates: start: 20060811
  3. ACETAMINOPHEN [Concomitant]
  4. ACYCLOVIR [Concomitant]
  5. ESOMEPRAZOLE MAGNESIUM [Concomitant]
  6. HEPARIN [Concomitant]
  7. ONDANSETRON [Concomitant]
  8. PENTAMIDINE ISETHIONATE [Concomitant]
  9. POTASSIUM CHLORIDE [Concomitant]
  10. SULFAMETHOXAZOLE [Concomitant]

REACTIONS (5)
  - ACINETOBACTER INFECTION [None]
  - BACILLUS INFECTION [None]
  - CENTRAL LINE INFECTION [None]
  - FEBRILE NEUTROPENIA [None]
  - STAPHYLOCOCCAL INFECTION [None]
